FAERS Safety Report 19669586 (Version 1)
Quarter: 2021Q3

REPORT INFORMATION
  Report Type: Spontaneous
  Country: BR (occurrence: BR)
  Receive Date: 20210806
  Receipt Date: 20210806
  Transmission Date: 20211014
  Serious: Yes (Life-Threatening, Other)
  Sender: FDA-Public Use
  Company Number: BR-SA-2021SA259664

PATIENT
  Age: 57 Year
  Sex: Female

DRUGS (2)
  1. CLEXANE [Suspect]
     Active Substance: ENOXAPARIN SODIUM
     Dosage: 80 MG, Q12H
     Route: 058
     Dates: start: 20210518, end: 20210519
  2. BERIPLEX [FACTOR II (PROTHROMBIN);FACTOR IX;FACTOR VII (PROCONVERTIN); [Concomitant]

REACTIONS (6)
  - Shock haemorrhagic [Unknown]
  - Pain [Unknown]
  - Renal haemorrhage [Unknown]
  - Condition aggravated [Unknown]
  - Haematuria [Unknown]
  - Haemodynamic instability [Unknown]
